FAERS Safety Report 8170591-6 (Version None)
Quarter: 2012Q1

REPORT INFORMATION
  Report Type: 
  Country: None (occurrence: None)
  Receive Date: 20120228
  Receipt Date: 20120216
  Transmission Date: 20120608
  Serious: Yes (Other)
  Sender: FDA-Public Use
  Company Number: DE-FRI-1000028113

PATIENT
  Sex: Female
  Weight: 51 kg

DRUGS (6)
  1. SPIRIVA [Concomitant]
  2. JUNIK [Concomitant]
  3. PREDNIHEXAL [Concomitant]
     Dates: start: 20110310, end: 20110319
  4. ALBUTEROL SULFATE [Concomitant]
  5. ROFLUMILAST [Suspect]
     Indication: CHRONIC OBSTRUCTIVE PULMONARY DISEASE
     Dosage: 500 MCG
     Route: 048
     Dates: start: 20110310, end: 20110401
  6. FORAIR [Concomitant]

REACTIONS (2)
  - GASTRIC DISORDER [None]
  - DIARRHOEA [None]
